FAERS Safety Report 5219964-1 (Version None)
Quarter: 2007Q1

REPORT INFORMATION
  Report Type: 
  Country: None (occurrence: None)
  Receive Date: 20070125
  Receipt Date: 20070116
  Transmission Date: 20070707
  Serious: Yes (Other)
  Sender: FDA-Public Use
  Company Number: US-PFIZER INC-2007005171

PATIENT

DRUGS (3)
  1. NORVASC [Suspect]
  2. LIPITOR [Suspect]
  3. PROZAC [Suspect]

REACTIONS (1)
  - ANAPHYLACTIC REACTION [None]
